FAERS Safety Report 5642943-7 (Version None)
Quarter: 2008Q1

REPORT INFORMATION
  Report Type: 
  Country: None (occurrence: None)
  Receive Date: 20080228
  Receipt Date: 20080220
  Transmission Date: 20080703
  Serious: Yes (Other)
  Sender: FDA-Public Use
  Company Number: US-JNJFOC-20080205265

PATIENT
  Age: 57 Year
  Sex: Female

DRUGS (1)
  1. RISPERDAL [Suspect]
     Indication: DELUSION

REACTIONS (2)
  - HALLUCINATION, VISUAL [None]
  - RETINITIS PIGMENTOSA [None]
